FAERS Safety Report 9904266 (Version 8)
Quarter: 2017Q4

REPORT INFORMATION
  Report Type: Spontaneous
  Country: US (occurrence: US)
  Receive Date: 20140218
  Receipt Date: 20171201
  Transmission Date: 20180321
  Serious: Yes (Death, Life-Threatening, Hospitalization, Other)
  Sender: FDA-Public Use
  Company Number: US-ROCHE-1346051

PATIENT
  Sex: Male
  Weight: 75.8 kg

DRUGS (10)
  1. ABILIFY [Concomitant]
     Active Substance: ARIPIPRAZOLE
  2. ATIVAN [Concomitant]
     Active Substance: LORAZEPAM
  3. PEGASYS [Suspect]
     Active Substance: PEGINTERFERON ALFA-2A
     Indication: HEPATITIS C
     Route: 058
     Dates: start: 2004
  4. COPEGUS [Suspect]
     Active Substance: RIBAVIRIN
     Route: 048
     Dates: start: 2008
  5. CYMBALTA [Concomitant]
     Active Substance: DULOXETINE HYDROCHLORIDE
     Route: 065
  6. PEGASYS [Suspect]
     Active Substance: PEGINTERFERON ALFA-2A
     Route: 058
     Dates: start: 2008
  7. COPEGUS [Suspect]
     Active Substance: RIBAVIRIN
     Dosage: 6 TO 12 PILLS A DAY
     Route: 048
  8. HARVONI [Suspect]
     Active Substance: LEDIPASVIR\SOFOSBUVIR
     Indication: HEPATITIS C
     Route: 065
  9. FIORICET [Concomitant]
     Active Substance: ACETAMINOPHEN\BUTALBITAL\CAFFEINE
     Indication: HEADACHE
     Route: 048
  10. COPEGUS [Suspect]
     Active Substance: RIBAVIRIN
     Indication: HEPATITIS C
     Route: 048

REACTIONS (49)
  - Bacillus infection [Not Recovered/Not Resolved]
  - Aphonia [Unknown]
  - Stress [Unknown]
  - Suicide attempt [Unknown]
  - Lung disorder [Not Recovered/Not Resolved]
  - Weight increased [Unknown]
  - Back pain [Unknown]
  - Pain of skin [Unknown]
  - Immobile [Unknown]
  - Gastrointestinal infection [Not Recovered/Not Resolved]
  - Hepatitis C [Not Recovered/Not Resolved]
  - Sputum discoloured [Unknown]
  - Abdominal pain upper [Not Recovered/Not Resolved]
  - Fractured coccyx [Unknown]
  - Pain [Not Recovered/Not Resolved]
  - Myalgia [Not Recovered/Not Resolved]
  - Injection site scab [Recovering/Resolving]
  - Rash [Unknown]
  - Bacterial infection [Recovered/Resolved]
  - Death [Fatal]
  - Vomiting [Not Recovered/Not Resolved]
  - Seizure [Not Recovered/Not Resolved]
  - Abdominal infection [Unknown]
  - Skin ulcer [Not Recovered/Not Resolved]
  - Confusional state [Unknown]
  - Abdominal distension [Unknown]
  - Injection site mass [Unknown]
  - Urticaria [Unknown]
  - Weight decreased [Unknown]
  - Mass [Unknown]
  - Injection site pain [Recovering/Resolving]
  - White blood cell count decreased [Unknown]
  - Disease recurrence [Not Recovered/Not Resolved]
  - Viral infection [Unknown]
  - Suicidal ideation [Unknown]
  - Bowel movement irregularity [Unknown]
  - Amnesia [Unknown]
  - General physical health deterioration [Unknown]
  - Ill-defined disorder [Unknown]
  - Nausea [Unknown]
  - Product quality issue [Unknown]
  - Headache [Not Recovered/Not Resolved]
  - Blister [Not Recovered/Not Resolved]
  - Malaise [Unknown]
  - Nasopharyngitis [Unknown]
  - Dyspnoea [Unknown]
  - Diarrhoea [Not Recovered/Not Resolved]
  - Drug effect decreased [Unknown]
  - Hepatic pain [Unknown]
